FAERS Safety Report 9458646 (Version 1)
Quarter: 2013Q3

REPORT INFORMATION
  Report Type: Spontaneous
  Country: None (occurrence: CA)
  Receive Date: 20130814
  Receipt Date: 20130814
  Transmission Date: 20140515
  Serious: Yes (Life-Threatening)
  Sender: FDA-Public Use
  Company Number: 2013SP002298

PATIENT
  Age: 49 Year
  Sex: Female

DRUGS (8)
  1. LATUDA [Suspect]
     Route: 048
  2. CLONAZEPAM [Concomitant]
  3. DEEP BRAIN STIMULATOR [Concomitant]
  4. FLURAZEPAM [Concomitant]
  5. MODAFINIL [Concomitant]
  6. PRISTIQ [Concomitant]
  7. SYNTHROID [Concomitant]
  8. WELLBUTRIN [Concomitant]

REACTIONS (2)
  - Condition aggravated [Recovered/Resolved]
  - Suicidal ideation [Recovered/Resolved]
